FAERS Safety Report 19091049 (Version 1)
Quarter: 2021Q2

REPORT INFORMATION
  Report Type: Spontaneous
  Country: JP (occurrence: JP)
  Receive Date: 20210405
  Receipt Date: 20210405
  Transmission Date: 20210717
  Serious: Yes (Other)
  Sender: FDA-Public Use
  Company Number: JP-SUN PHARMACEUTICAL INDUSTRIES LTD-2021RR-288837

PATIENT
  Age: 67 Year
  Sex: Male

DRUGS (5)
  1. BORTEZOMIB. [Suspect]
     Active Substance: BORTEZOMIB
     Indication: HEAVY CHAIN DISEASE
     Dosage: 1.3 MILLIGRAM/SQ. METER ON DAYS 1, 4, 8, 11
     Route: 065
  2. DEXAMETHASONE. [Suspect]
     Active Substance: DEXAMETHASONE
     Dosage: 20 MILLIGRAM, DAILY, ON DAYS 1, 8, 15 AND 22
     Route: 065
  3. DEXAMETHASONE. [Suspect]
     Active Substance: DEXAMETHASONE
     Indication: HEAVY CHAIN DISEASE
     Dosage: 20 MILLIGRAM, DAILY, ON DAYS 1, 2, 4, 5, 8, 9, 11 AND 12
     Route: 065
  4. LENALIDOMIDE [Suspect]
     Active Substance: LENALIDOMIDE
     Indication: HEAVY CHAIN DISEASE
     Dosage: 25 MILLIGRAM, DAILY ON DAYS 1?21
     Route: 065
  5. LENALIDOMIDE [Suspect]
     Active Substance: LENALIDOMIDE
     Dosage: 20 MILLIGRAM, DAILY FROM THE FIFHT COURSE OF TREATMENT
     Route: 065

REACTIONS (4)
  - Neutropenia [Unknown]
  - Drug resistance [Unknown]
  - Thrombocytopenia [Unknown]
  - Therapeutic product effect incomplete [Unknown]
